FAERS Safety Report 23667997 (Version 1)
Quarter: 2024Q1

REPORT INFORMATION
  Report Type: Spontaneous
  Country: AT (occurrence: AT)
  Receive Date: 20240325
  Receipt Date: 20240325
  Transmission Date: 20240410
  Serious: Yes (Other)
  Sender: FDA-Public Use
  Company Number: AT-DAIICHI SANKYO, INC.-DSE-2024-112304

PATIENT
  Age: 58 Year
  Sex: Male

DRUGS (2)
  1. ENHERTU [Suspect]
     Active Substance: FAM-TRASTUZUMAB DERUXTECAN-NXKI
     Indication: HER2 positive gastric cancer
     Dosage: UNK UNK, CYCLIC
     Route: 065
     Dates: start: 202206, end: 202211
  2. ENHERTU [Suspect]
     Active Substance: FAM-TRASTUZUMAB DERUXTECAN-NXKI
     Indication: Metastatic gastric cancer
     Dosage: 5.4 MG/KG, CYCLIC
     Route: 065
     Dates: start: 202212

REACTIONS (8)
  - Hepatic necrosis [Unknown]
  - Metastases to liver [Unknown]
  - Interstitial lung disease [Unknown]
  - Neutropenia [Unknown]
  - COVID-19 [Unknown]
  - Abdominal pain upper [Unknown]
  - Fatigue [Unknown]
  - Intentional product use issue [Not Recovered/Not Resolved]

NARRATIVE: CASE EVENT DATE: 20221001
